FAERS Safety Report 4864883-3 (Version None)
Quarter: 2005Q4

REPORT INFORMATION
  Report Type: 
  Country: None (occurrence: None)
  Receive Date: 20051201
  Receipt Date: 20050811
  Transmission Date: 20060501
  Serious: No
  Sender: FDA-Public Use
  Company Number: 2005PV001106

PATIENT
  Age: 65 Year
  Sex: Female

DRUGS (11)
  1. BYETTA [Suspect]
     Indication: DIABETES MELLITUS NON-INSULIN-DEPENDENT
     Dosage: 5 MCG; BID; SC
     Route: 058
     Dates: start: 20050718, end: 20050803
  2. LEVOXYL [Concomitant]
  3. FOSAMAX [Concomitant]
  4. VYTORIN [Concomitant]
  5. NEURONTIN [Concomitant]
  6. LOTREL [Concomitant]
  7. GLUCOPHAGE XR [Concomitant]
  8. LASIX [Concomitant]
  9. POTASSIUM [Concomitant]
  10. LANTUS [Concomitant]
  11. NOVOLOG [Concomitant]

REACTIONS (4)
  - MUSCLE SPASMS [None]
  - NAUSEA [None]
  - VOMITING [None]
  - WEIGHT DECREASED [None]
